FAERS Safety Report 12996264 (Version 1)
Quarter: 2016Q4

REPORT INFORMATION
  Report Type: Spontaneous
  Country: GB (occurrence: GB)
  Receive Date: 20161203
  Receipt Date: 20161203
  Transmission Date: 20170207
  Serious: Yes (Other)
  Sender: FDA-Public Use
  Company Number: GB-ACCORD-045939

PATIENT
  Age: 84 Year
  Sex: Male

DRUGS (3)
  1. LIPITOR [Suspect]
     Active Substance: ATORVASTATIN CALCIUM
     Indication: PRODUCT USED FOR UNKNOWN INDICATION
     Dates: end: 20161026
  2. DOXAZOSIN [Suspect]
     Active Substance: DOXAZOSIN\DOXAZOSIN MESYLATE
     Indication: PRODUCT USED FOR UNKNOWN INDICATION
     Dates: end: 20161025
  3. AMLODIPINE [Suspect]
     Active Substance: AMLODIPINE BESYLATE
     Indication: HYPERTENSION
     Dosage: CUTTING THE 5 MG TABLETS IN HALF WITH A HACKSAW REDUCING THE DOSE TO 2.5 MG DAILY.
     Dates: end: 20161021

REACTIONS (11)
  - Gait disturbance [Recovered/Resolved]
  - Fatigue [Unknown]
  - Nasopharyngitis [Unknown]
  - Dizziness [Recovered/Resolved]
  - Urinary tract pain [Recovering/Resolving]
  - Dyspnoea [Unknown]
  - Pollakiuria [Recovering/Resolving]
  - Hypotension [Recovered/Resolved]
  - Bradycardia [Recovered/Resolved]
  - Micturition urgency [Recovering/Resolving]
  - Wrong technique in product usage process [Unknown]

NARRATIVE: CASE EVENT DATE: 201609
